FAERS Safety Report 5276004-6 (Version None)
Quarter: 2007Q1

REPORT INFORMATION
  Report Type: 
  Country: None (occurrence: None)
  Receive Date: 20070326
  Receipt Date: 20061222
  Transmission Date: 20070707
  Serious: Yes (Life-Threatening, Hospitalization)
  Sender: FDA-Public Use
  Company Number: US-JNJFOC-20060901430

PATIENT
  Sex: Male
  Weight: 75.82 kg

DRUGS (13)
  1. PLACEBO [Suspect]
     Indication: HIV INFECTION
     Route: 048
  2. TMC114 [Suspect]
     Route: 048
  3. TMC114 [Suspect]
     Indication: HIV INFECTION
     Route: 048
  4. RITONAVIR [Suspect]
     Indication: HIV INFECTION
     Route: 048
  5. TRUVADA [Concomitant]
     Indication: HIV INFECTION
     Route: 048
  6. AZITHROMYCIN [Concomitant]
     Indication: PROPHYLAXIS
     Route: 048
  7. FLUCONAZOLE [Concomitant]
     Indication: CANDIDIASIS
     Route: 048
  8. VALCYTE [Concomitant]
     Indication: CYTOMEGALOVIRUS CHORIORETINITIS
     Route: 048
  9. NEUPOGEN [Concomitant]
     Indication: NEUTROPENIA
     Route: 042
  10. CENTRUM SILVER [Concomitant]
     Indication: MEDICAL DIET
     Route: 048
  11. ASCORBIC ACID [Concomitant]
     Indication: MEDICAL DIET
     Route: 048
  12. ARANESP [Concomitant]
     Indication: NEUTROPENIA
     Route: 058
  13. MEPRON [Concomitant]
     Indication: PNEUMOCYSTIS JIROVECI INFECTION
     Route: 048

REACTIONS (5)
  - HAEMOPTYSIS [None]
  - MASS [None]
  - PLATELET COUNT DECREASED [None]
  - PULMONARY MASS [None]
  - PYREXIA [None]
